FAERS Safety Report 17750476 (Version 1)
Quarter: 2020Q2

REPORT INFORMATION
  Report Type: Spontaneous
  Country: US (occurrence: US)
  Receive Date: 20200506
  Receipt Date: 20200506
  Transmission Date: 20200714
  Serious: No
  Sender: FDA-Public Use
  Company Number: None

PATIENT
  Age: 65 Year
  Sex: Female
  Weight: 65.25 kg

DRUGS (4)
  1. TYLENOL [Concomitant]
     Active Substance: ACETAMINOPHEN
  2. BAQSIMI [Suspect]
     Active Substance: GLUCAGON
     Indication: HYPOGLYCAEMIA
     Dosage: ?          QUANTITY:3 INHALATION(S);OTHER ROUTE:INTRANASAL?
     Dates: start: 20200411, end: 20200411
  3. CANCER CHEMOTHERAPY [Concomitant]
     Active Substance: UNSPECIFIED INGREDIENT
  4. OMEGA 3 [Concomitant]
     Active Substance: OMEGA-3 FATTY ACIDS

REACTIONS (7)
  - Lacrimation increased [None]
  - Facial pain [None]
  - Sinus pain [None]
  - Sensation of blood flow [None]
  - Headache [None]
  - Rhinorrhoea [None]
  - Eye pain [None]

NARRATIVE: CASE EVENT DATE: 20200411
